FAERS Safety Report 10230447 (Version 3)
Quarter: 2015Q2

REPORT INFORMATION
  Report Type: Spontaneous
  Country: US (occurrence: US)
  Receive Date: 20140611
  Receipt Date: 20150626
  Transmission Date: 20150821
  Serious: Yes (Congenital Anomaly)
  Sender: FDA-Public Use
  Company Number: US-UCBSA-2014001591

PATIENT
  Sex: Male
  Weight: 3.42 kg

DRUGS (1)
  1. CIMZIA [Suspect]
     Active Substance: CERTOLIZUMAB PEGOL
     Indication: CROHN^S DISEASE
     Dosage: 400 MG, EV 4 WEEKS, 200 MG EACH 2 SHOTS 1X PER MONTH
     Route: 064
     Dates: start: 201310, end: 20140131

REACTIONS (2)
  - Foetal exposure during pregnancy [Unknown]
  - Ankyloglossia congenital [Recovered/Resolved]

NARRATIVE: CASE EVENT DATE: 201310
